FAERS Safety Report 4607731-9 (Version None)
Quarter: 2005Q1

REPORT INFORMATION
  Report Type: 
  Country: None (occurrence: None)
  Receive Date: 20050309
  Receipt Date: 20050215
  Transmission Date: 20050727
  Serious: Yes (Hospitalization)
  Sender: FDA-Public Use
  Company Number: DE_041014562

PATIENT
  Age: 78 Year
  Sex: Male
  Weight: 126 kg

DRUGS (9)
  1. PEMETREXED [Suspect]
     Indication: NON-SMALL CELL LUNG CANCER
     Dosage: 1200 MG
     Dates: start: 20041020
  2. CISPLATIN [Suspect]
     Indication: NON-SMALL CELL LUNG CANCER
     Dosage: 180 MG
     Dates: start: 20041020
  3. VITAMIN B-12 [Concomitant]
  4. LAFOL (FOLIC ACID) [Concomitant]
  5. DEXAMETHASONE [Concomitant]
  6. KEVATRIL (GRANISETRON HDYROCHLORIDE) [Concomitant]
  7. ENALAPRIL [Concomitant]
  8. GLUCOPHAGE [Concomitant]
  9. LEVOTHYROXINE SODIUM [Concomitant]

REACTIONS (5)
  - ANAL INFECTION [None]
  - CONSTIPATION [None]
  - DIARRHOEA [None]
  - MUCOSAL INFLAMMATION [None]
  - PROCTITIS [None]
